FAERS Safety Report 12503693 (Version 1)
Quarter: 2016Q2

REPORT INFORMATION
  Report Type: Other
  Country: US (occurrence: US)
  Receive Date: 20160628
  Receipt Date: 20160628
  Transmission Date: 20160815
  Serious: Yes (Other)
  Sender: FDA-Public Use
  Company Number: US-ACORDA-ACO_125270_2016

PATIENT
  Age: 78 Year
  Sex: Female

DRUGS (1)
  1. AMPYRA [Suspect]
     Active Substance: DALFAMPRIDINE
     Indication: MULTIPLE SCLEROSIS
     Dosage: 10 MG, BID
     Route: 048
     Dates: start: 20100629

REACTIONS (13)
  - Body temperature increased [Unknown]
  - Base excess increased [Unknown]
  - Monocyte percentage increased [Unknown]
  - Oxygen saturation decreased [Unknown]
  - Cough [Unknown]
  - Base excess decreased [Unknown]
  - Lymphocyte percentage decreased [Unknown]
  - Blood pH normal [Unknown]
  - Blood sodium decreased [Unknown]
  - PO2 decreased [Unknown]
  - Pulmonary mass [Unknown]
  - Blood bicarbonate decreased [Unknown]
  - PCO2 decreased [Unknown]

NARRATIVE: CASE EVENT DATE: 20160520
